FAERS Safety Report 6442619-2 (Version None)
Quarter: 2009Q4

REPORT INFORMATION
  Report Type: 
  Country: None (occurrence: None)
  Receive Date: 20091117
  Receipt Date: 20091109
  Transmission Date: 20100525
  Serious: Yes (Other)
  Sender: FDA-Public Use
  Company Number: US-JNJFOC-20090908187

PATIENT
  Sex: Female
  Weight: 83 kg

DRUGS (1)
  1. NATRECOR [Suspect]
     Indication: CARDIAC FAILURE CONGESTIVE
     Dosage: 83 ML/HR X 3 HOURS, INSTEAD OF 2 MCG/KG BOLUS FOLLOWED BY 0.01 MCG/KG/MIN
     Route: 042
     Dates: start: 20090925, end: 20090925

REACTIONS (1)
  - MEDICATION ERROR [None]
